FAERS Safety Report 17483542 (Version 1)
Quarter: 2020Q1

REPORT INFORMATION
  Report Type: Spontaneous
  Country: US (occurrence: US)
  Receive Date: 20200302
  Receipt Date: 20200302
  Transmission Date: 20200409
  Serious: Yes (Hospitalization, Other)
  Sender: FDA-Public Use
  Company Number: US-APOTEX-2020AP008223

PATIENT
  Age: 34 Year
  Sex: Male

DRUGS (2)
  1. AMOXICILLIN /CLAVULANATE [Suspect]
     Active Substance: AMOXICILLIN\CLAVULANATE POTASSIUM
     Indication: ACUTE SINUSITIS
     Dosage: UNK, UNKNOWN
     Route: 065
  2. SECUKINUMAB. [Concomitant]
     Active Substance: SECUKINUMAB
     Indication: ANKYLOSING SPONDYLITIS
     Dosage: UNK, UNKNOWN
     Route: 065

REACTIONS (2)
  - Hepatocellular injury [Recovered/Resolved]
  - Drug-induced liver injury [Recovered/Resolved]
